FAERS Safety Report 11856380 (Version 1)
Quarter: 2015Q4

REPORT INFORMATION
  Report Type: Spontaneous
  Country: FI (occurrence: None)
  Receive Date: 20151218
  Receipt Date: 20151218
  Transmission Date: 20160305
  Serious: Yes (Life-Threatening, Hospitalization, Disabling)
  Sender: FDA-Public Use
  Company Number: None

PATIENT
  Age: 17 Year
  Sex: Male
  Weight: 80 kg

DRUGS (1)
  1. ZYPREXA [Suspect]
     Active Substance: OLANZAPINE
     Route: 048
     Dates: start: 20060101, end: 20080601

REACTIONS (8)
  - Sleep paralysis [None]
  - Insomnia [None]
  - Sleep disorder [None]
  - Anxiety [None]
  - Apathy [None]
  - Suicide attempt [None]
  - Pain [None]
  - Emotional disorder [None]

NARRATIVE: CASE EVENT DATE: 20151217
